FAERS Safety Report 21788509 (Version 2)
Quarter: 2022Q4

REPORT INFORMATION
  Report Type: Spontaneous
  Country: US (occurrence: US)
  Receive Date: 20221228
  Receipt Date: 20221230
  Transmission Date: 20230112
  Serious: Yes (Other)
  Sender: FDA-Public Use
  Company Number: US-GLAXOSMITHKLINE-USCH2022AMR052198

PATIENT
  Age: 11 Year
  Sex: Female

DRUGS (1)
  1. CITRUCEL [Suspect]
     Active Substance: METHYLCELLULOSE (4000 MPA.S)
     Indication: Product used for unknown indication
     Dosage: UNK
     Dates: start: 20221212, end: 20221218

REACTIONS (4)
  - Foreign body in throat [Unknown]
  - Cough [Unknown]
  - Product use complaint [Unknown]
  - Product complaint [Unknown]

NARRATIVE: CASE EVENT DATE: 20221201
